FAERS Safety Report 19371388 (Version 2)
Quarter: 2021Q4

REPORT INFORMATION
  Report Type: Report from Study
  Country: KR (occurrence: KR)
  Receive Date: 20210604
  Receipt Date: 20211123
  Transmission Date: 20220303
  Serious: Yes (Hospitalization, Other)
  Sender: FDA-Public Use
  Company Number: KR-KYOWAKIRIN-2021AKK008911

PATIENT
  Age: 52 Year
  Sex: Male

DRUGS (4)
  1. FILGRASTIM [Suspect]
     Active Substance: FILGRASTIM
     Indication: Product used for unknown indication
     Dosage: UNK
     Route: 065
  2. DASATINIB [Concomitant]
     Active Substance: DASATINIB
     Indication: Product used for unknown indication
     Dosage: 100 MG, QD
     Route: 065
  3. DASATINIB [Concomitant]
     Active Substance: DASATINIB
     Dosage: 100 MG, QD
     Route: 065
     Dates: start: 20140403, end: 20140416
  4. DASATINIB [Concomitant]
     Active Substance: DASATINIB
     Dosage: 100 MG, QD
     Route: 065
     Dates: start: 20140417, end: 20140618

REACTIONS (1)
  - Gastrointestinal haemorrhage [Recovered/Resolved]

NARRATIVE: CASE EVENT DATE: 20140710
